FAERS Safety Report 17433863 (Version 1)
Quarter: 2020Q1

REPORT INFORMATION
  Report Type: Spontaneous
  Country: US (occurrence: US)
  Receive Date: 20200218
  Receipt Date: 20200218
  Transmission Date: 20200409
  Serious: No
  Sender: FDA-Public Use
  Company Number: None

PATIENT
  Age: 59 Year
  Sex: Female
  Weight: 63 kg

DRUGS (12)
  1. MULTI VITAMIN [Concomitant]
     Active Substance: VITAMINS
  2. LEXAPRO [Concomitant]
     Active Substance: ESCITALOPRAM OXALATE
  3. PROTONIX [Concomitant]
     Active Substance: PANTOPRAZOLE SODIUM
  4. CARBATROL [Concomitant]
     Active Substance: CARBAMAZEPINE
  5. MAGNESIUM [Concomitant]
     Active Substance: MAGNESIUM
  6. MODAFINIL. [Concomitant]
     Active Substance: MODAFINIL
  7. COQ10 [Concomitant]
     Active Substance: UBIDECARENONE
  8. VALTREX [Concomitant]
     Active Substance: VALACYCLOVIR HYDROCHLORIDE
  9. CAFALY DEVICE [Concomitant]
  10. AIMOVIG [Suspect]
     Active Substance: ERENUMAB-AOOE
     Indication: MIGRAINE
     Dosage: ?          QUANTITY:140 INJECTION(S);OTHER FREQUENCY:MONTHLY;OTHER ROUTE:SUBCUTANEOUS INJECTION?
  11. DEPAKOTE [Concomitant]
     Active Substance: DIVALPROEX SODIUM
  12. BOTOX [Concomitant]
     Active Substance: ONABOTULINUMTOXINA

REACTIONS (1)
  - Alopecia [None]

NARRATIVE: CASE EVENT DATE: 20191125
